FAERS Safety Report 6648773-1 (Version None)
Quarter: 2010Q1

REPORT INFORMATION
  Report Type: 
  Country: None (occurrence: None)
  Receive Date: 20100324
  Receipt Date: 20100304
  Transmission Date: 20100710
  Serious: Yes (Life-Threatening, Other)
  Sender: FDA-Public Use
  Company Number: PHHY2010BR13216

PATIENT
  Age: 69 Year
  Sex: Male
  Weight: 73 kg

DRUGS (2)
  1. CODATEN [Suspect]
     Indication: PAIN
     Dosage: 1 DF, Q8H
     Route: 048
  2. LIORESAL [Concomitant]
     Indication: MUSCLE SPASMS
     Dosage: 9 TABLETS DAILY
     Route: 048

REACTIONS (7)
  - ALTERED STATE OF CONSCIOUSNESS [None]
  - FEELING ABNORMAL [None]
  - INFREQUENT BOWEL MOVEMENTS [None]
  - SOMNOLENCE [None]
  - TERMINAL STATE [None]
  - UNRESPONSIVE TO STIMULI [None]
  - URINARY RETENTION [None]
